FAERS Safety Report 8490883-0 (Version None)
Quarter: 2012Q2

REPORT INFORMATION
  Report Type: 
  Country: None (occurrence: None)
  Receive Date: 20120628
  Receipt Date: 20120628
  Transmission Date: 20120825
  Serious: Yes (Other)
  Sender: FDA-Public Use
  Company Number: None

PATIENT
  Sex: Female
  Weight: 90.7194 kg

DRUGS (1)
  1. PENICILLIN [Suspect]
     Indication: DEVICE RELATED INFECTION
     Dosage: 500MG 6X DAILY
     Dates: start: 20120609

REACTIONS (3)
  - EXPOSURE VIA DIRECT CONTACT [None]
  - SKIN EROSION [None]
  - SKIN BURNING SENSATION [None]
